FAERS Safety Report 16272273 (Version 2)
Quarter: 2019Q2

REPORT INFORMATION
  Report Type: Spontaneous
  Country: US (occurrence: US)
  Receive Date: 20190506
  Receipt Date: 20190521
  Transmission Date: 20190711
  Serious: No
  Sender: FDA-Public Use
  Company Number: US-CELGENEUS-USA-20190409656

PATIENT
  Sex: Female

DRUGS (5)
  1. DERMASONE [Concomitant]
     Indication: PSORIASIS
     Route: 065
     Dates: start: 20170302
  2. ADETAN [Concomitant]
     Indication: PSORIASIS
     Route: 065
     Dates: start: 20181031
  3. OTEZLA [Suspect]
     Active Substance: APREMILAST
     Indication: PSORIASIS
     Dosage: 60 MILLIGRAM
     Route: 048
     Dates: start: 20190403
  4. TRIAMCINOLONE [Concomitant]
     Active Substance: TRIAMCINOLONE
     Indication: PSORIASIS
     Route: 065
     Dates: start: 20170302
  5. OTEZLA [Suspect]
     Active Substance: APREMILAST
     Indication: PSORIASIS
     Dosage: TITRATION PACK
     Route: 048

REACTIONS (2)
  - Diarrhoea [Recovered/Resolved]
  - Product dose omission [Unknown]
